FAERS Safety Report 5018335-0 (Version None)
Quarter: 2006Q2

REPORT INFORMATION
  Report Type: 
  Country: None (occurrence: None)
  Receive Date: 20060530
  Receipt Date: 20050602
  Transmission Date: 20061013
  Serious: Yes (Other)
  Sender: FDA-Public Use
  Company Number: 2005081566

PATIENT
  Age: 64 Year
  Sex: Female
  Weight: 80 kg

DRUGS (12)
  1. LYRICA [Suspect]
     Indication: DIABETIC NEUROPATHY
     Dosage: 150 MG (50 MG, 3 IN 1 D), ORAL
     Route: 048
     Dates: start: 20041126
  2. ALL OTHER THERAPEUTIC PRODUCTS [Concomitant]
  3. EZETIMIBE [Concomitant]
  4. BEZALIP-MONO (BEZAFIBRATE) [Concomitant]
  5. NICORANDIL [Concomitant]
  6. GLICLAZIDE [Concomitant]
  7. METFORMIN [Concomitant]
  8. ACETYLSALICYLIC ACID SRT [Concomitant]
  9. VERAPAMIL [Concomitant]
  10. OMEPRAZOLE [Concomitant]
  11. BENDROFLUMETHIAZIDE [Concomitant]
  12. MONOMAX (ISOSORBIDE MONONITRATE) [Concomitant]

REACTIONS (1)
  - DIABETES MELLITUS INADEQUATE CONTROL [None]
